FAERS Safety Report 8401724-1 (Version None)
Quarter: 2012Q2

REPORT INFORMATION
  Report Type: 
  Country: None (occurrence: None)
  Receive Date: 20120601
  Receipt Date: 20120530
  Transmission Date: 20120825
  Serious: Yes (Other)
  Sender: FDA-Public Use
  Company Number: AU-PURDUE-USA-2012-0087746

PATIENT
  Age: 37 Year
  Sex: Male

DRUGS (3)
  1. MORPHINE SULFATE [Suspect]
     Indication: PAIN
  2. OXYCONTIN [Suspect]
     Indication: PAIN
     Route: 048
  3. VALIUM [Suspect]
     Indication: PRODUCT USED FOR UNKNOWN INDICATION

REACTIONS (3)
  - SUICIDAL IDEATION [None]
  - DRUG DEPENDENCE [None]
  - DRUG ABUSE [None]
